FAERS Safety Report 7617138-8 (Version None)
Quarter: 2011Q3

REPORT INFORMATION
  Report Type: 
  Country: None (occurrence: None)
  Receive Date: 20110718
  Receipt Date: 20110708
  Transmission Date: 20111222
  Serious: Yes (Hospitalization, Other)
  Sender: FDA-Public Use
  Company Number: US-JNJFOC-20110703763

PATIENT
  Sex: Female
  Weight: 72.58 kg

DRUGS (2)
  1. DURAGESIC-100 [Suspect]
     Indication: FIBROMYALGIA
     Dosage: 100 PLUS 25UG/HR
     Route: 062
  2. TRAMADOL HCL [Concomitant]
     Indication: FIBROMYALGIA
     Route: 048
     Dates: start: 20110401

REACTIONS (12)
  - TOOTH INFECTION [None]
  - WRONG TECHNIQUE IN DRUG USAGE PROCESS [None]
  - OVERDOSE [None]
  - MENTAL DISORDER [None]
  - ROAD TRAFFIC ACCIDENT [None]
  - AMNESIA [None]
  - SEROTONIN SYNDROME [None]
  - RETINAL TEAR [None]
  - BIPOLAR DISORDER [None]
  - SUICIDE ATTEMPT [None]
  - LOSS OF CONSCIOUSNESS [None]
  - PRODUCT QUALITY ISSUE [None]
